FAERS Safety Report 4706587-3 (Version None)
Quarter: 2005Q3

REPORT INFORMATION
  Report Type: 
  Country: None (occurrence: None)
  Receive Date: 20050705
  Receipt Date: 20050623
  Transmission Date: 20060218
  Serious: Yes (Life-Threatening)
  Sender: FDA-Public Use
  Company Number: 200511313DE

PATIENT
  Age: 67 Year
  Sex: Male

DRUGS (15)
  1. CODE UNBROKEN [Suspect]
     Indication: PROGRESSIVE SUPRANUCLEAR PALSY
     Route: 048
     Dates: start: 20010715, end: 20010904
  2. RIVASTIGMINE [Concomitant]
     Indication: DEMENTIA
     Dates: start: 20000101
  3. CLOPIDOGREL BISULFATE [Concomitant]
     Dates: start: 20010101
  4. VITAMIN E [Concomitant]
  5. LACTULOSE [Concomitant]
     Indication: CONSTIPATION
     Dates: start: 20010712
  6. TOLTERODIN [Concomitant]
     Indication: INCONTINENCE
     Dates: start: 20000101, end: 20030901
  7. ALPHA-LIPONSAURE [Concomitant]
     Indication: DYSAESTHESIA
     Dates: start: 20000101, end: 20010714
  8. L-DOPA [Concomitant]
     Indication: MUSCLE RIGIDITY
     Dates: start: 20010710, end: 20030101
  9. BENSERAZIDE [Concomitant]
     Indication: MUSCLE RIGIDITY
     Dates: start: 20010710, end: 20030101
  10. AMANTADINE HCL [Concomitant]
     Indication: MUSCLE RIGIDITY
     Dates: start: 20030501
  11. METHRONIN [Concomitant]
     Indication: URINARY TRACT INFECTION
     Dates: start: 20030901
  12. CALCIUM CARBONATE W/COLECALCIFEROL [Concomitant]
     Dates: start: 20030401, end: 20030901
  13. GINKGO BILOBA [Concomitant]
     Indication: DEMENTIA
     Dates: start: 20040101
  14. PROPIVERIN [Concomitant]
     Indication: URINARY INCONTINENCE
     Dates: start: 20030901
  15. PIRACETAM [Concomitant]
     Indication: DEMENTIA
     Dates: start: 20030401, end: 20030901

REACTIONS (2)
  - COUGH [None]
  - LOSS OF CONSCIOUSNESS [None]
